FAERS Safety Report 20491801 (Version 5)
Quarter: 2022Q4

REPORT INFORMATION
  Report Type: Spontaneous
  Country: FR (occurrence: None)
  Receive Date: 20220218
  Receipt Date: 20221226
  Transmission Date: 20230113
  Serious: Yes (Other)
  Sender: FDA-Public Use
  Company Number: FR-Merck Healthcare KGaA-9299800

PATIENT
  Age: 41 Year
  Sex: Female
  Weight: 58 kg

DRUGS (2)
  1. LEVOTHYROXINE [Suspect]
     Active Substance: LEVOTHYROXINE
     Indication: Post procedural hypothyroidism
     Dosage: NEW FORMULATION?START DATE: 06 MAY 2017
     Dates: end: 201804
  2. DEXAMETHASONE [Concomitant]
     Active Substance: DEXAMETHASONE
     Indication: Product used for unknown indication

REACTIONS (24)
  - Gastrointestinal disorder [Unknown]
  - Mitral valve incompetence [Unknown]
  - Pain [Unknown]
  - Mean platelet volume decreased [Unknown]
  - Glomerular filtration rate decreased [Unknown]
  - Eating disorder [Unknown]
  - Abdominal pain upper [Recovered/Resolved]
  - Flatulence [Unknown]
  - Photophobia [Unknown]
  - Eye swelling [Unknown]
  - Alopecia [Unknown]
  - Depression [Unknown]
  - Arthralgia [Recovered/Resolved]
  - Fatigue [Unknown]
  - Muscle atrophy [Unknown]
  - Somnolence [Unknown]
  - Amnesia [Unknown]
  - Asthenia [Unknown]
  - Discomfort [Unknown]
  - Impaired work ability [Unknown]
  - Mental disorder [Unknown]
  - Crying [Unknown]
  - Insomnia [Unknown]
  - Muscle spasms [Unknown]

NARRATIVE: CASE EVENT DATE: 20170101
